FAERS Safety Report 5763350-2 (Version None)
Quarter: 2008Q2

REPORT INFORMATION
  Report Type: 
  Country: None (occurrence: None)
  Receive Date: 20080609
  Receipt Date: 20080530
  Transmission Date: 20081010
  Serious: Yes (Death)
  Sender: FDA-Public Use
  Company Number: FR-GENENTECH-262315

PATIENT
  Sex: Male

DRUGS (1)
  1. MABTHERA [Suspect]
     Indication: HODGKIN'S DISEASE
     Dosage: 375 MG/M2, 1/WEEK
     Route: 042
     Dates: start: 20080229, end: 20080321

REACTIONS (1)
  - MENINGITIS MENINGOCOCCAL [None]
